FAERS Safety Report 10648451 (Version 1)
Quarter: 2014Q4

REPORT INFORMATION
  Report Type: Report from Study
  Country: US (occurrence: US)
  Receive Date: 20141212
  Receipt Date: 20141212
  Transmission Date: 20150529
  Serious: Yes (Hospitalization)
  Sender: FDA-Public Use
  Company Number: PHEH2014US024600

PATIENT
  Sex: Male

DRUGS (1)
  1. AFINITOR [Suspect]
     Active Substance: EVEROLIMUS
     Indication: RENAL CELL CARCINOMA
     Dosage: 10 MG, QD
     Route: 048

REACTIONS (5)
  - Fluid retention [Unknown]
  - Malnutrition [Unknown]
  - Anaemia [Unknown]
  - Acute kidney injury [Unknown]
  - Atrial fibrillation [Unknown]
